FAERS Safety Report 7797741-5 (Version None)
Quarter: 2011Q4

REPORT INFORMATION
  Report Type: 
  Country: None (occurrence: None)
  Receive Date: 20111005
  Receipt Date: 20110929
  Transmission Date: 20120403
  Serious: Yes (Other)
  Sender: FDA-Public Use
  Company Number: PHHY2010CA45457

PATIENT
  Sex: Female

DRUGS (6)
  1. ZOLEDRONOC ACID [Suspect]
     Indication: OSTEOPOROSIS
     Dosage: 5 MG, UNK
     Route: 042
     Dates: start: 20090907
  2. COLCHICINE [Concomitant]
  3. CARBOCAL D [Concomitant]
  4. ZOLEDRONOC ACID [Suspect]
     Dosage: UNK
     Route: 042
     Dates: start: 20100911
  5. ALTACE [Concomitant]
  6. VESICARE [Concomitant]

REACTIONS (7)
  - ABASIA [None]
  - CEREBROVASCULAR ACCIDENT [None]
  - FEELING DRUNK [None]
  - DIZZINESS [None]
  - DYSSTASIA [None]
  - APHASIA [None]
  - MYALGIA [None]
